FAERS Safety Report 6975620-0 (Version None)
Quarter: 2010Q3

REPORT INFORMATION
  Report Type: 
  Country: None (occurrence: None)
  Receive Date: 20100910
  Receipt Date: 20090507
  Transmission Date: 20110219
  Serious: No
  Sender: FDA-Public Use
  Company Number: US-WYE-H08698309

PATIENT
  Sex: Female
  Weight: 63.56 kg

DRUGS (7)
  1. PRISTIQ [Suspect]
     Indication: MAJOR DEPRESSION
     Route: 048
     Dates: start: 20090127, end: 20090306
  2. LIPITOR [Concomitant]
  3. ESTRATEST H.S. [Concomitant]
  4. BENTYL [Concomitant]
  5. ZYRTEC [Concomitant]
  6. NEXIUM [Concomitant]
  7. VITAMIN D [Concomitant]

REACTIONS (1)
  - MEMORY IMPAIRMENT [None]
